FAERS Safety Report 6176230-8 (Version None)
Quarter: 2009Q2

REPORT INFORMATION
  Report Type: 
  Country: None (occurrence: None)
  Receive Date: 20090501
  Receipt Date: 20090422
  Transmission Date: 20091009
  Serious: Yes (Hospitalization)
  Sender: FDA-Public Use
  Company Number: A0781357A

PATIENT
  Age: 50 Year
  Sex: Female
  Weight: 90.5 kg

DRUGS (6)
  1. VENTOLIN [Suspect]
     Indication: ASTHMA
     Route: 065
     Dates: start: 20090226
  2. XOPENEX [Suspect]
     Indication: ASTHMA
     Dosage: 90UG TWICE PER DAY
     Route: 055
  3. PAXIL [Suspect]
     Indication: DRUG USE FOR UNKNOWN INDICATION
     Dosage: 10MG UNKNOWN
     Route: 065
  4. ATIVAN [Concomitant]
  5. PROTONIX [Concomitant]
  6. DIOVAN HCT [Concomitant]

REACTIONS (11)
  - ANXIETY [None]
  - BLOOD POTASSIUM DECREASED [None]
  - CRYING [None]
  - FEELING JITTERY [None]
  - INSOMNIA [None]
  - NERVOUSNESS [None]
  - PERFORMANCE STATUS DECREASED [None]
  - SCREAMING [None]
  - THYROXINE FREE INCREASED [None]
  - TRI-IODOTHYRONINE INCREASED [None]
  - WHEEZING [None]
